FAERS Safety Report 24738594 (Version 1)
Quarter: 2024Q4

REPORT INFORMATION
  Report Type: Spontaneous
  Country: US (occurrence: None)
  Receive Date: 20241216
  Receipt Date: 20241216
  Transmission Date: 20250114
  Serious: No
  Sender: Public
  Company Number: None

PATIENT
  Age: 26 Year
  Sex: Female
  Weight: 72 kg

DRUGS (4)
  1. QELBREE [Suspect]
     Active Substance: VILOXAZINE HYDROCHLORIDE
     Indication: Attention deficit hyperactivity disorder
     Dates: start: 20240909, end: 20241215
  2. GUANFACINE [Concomitant]
     Active Substance: GUANFACINE
  3. KYLEENA [Concomitant]
     Active Substance: LEVONORGESTREL
  4. VITAMINS [Concomitant]
     Active Substance: VITAMINS

REACTIONS (12)
  - Lethargy [None]
  - Insomnia [None]
  - Headache [None]
  - Brain fog [None]
  - Heart rate increased [None]
  - Decreased appetite [None]
  - Mental disorder [None]
  - Depression [None]
  - Anxiety [None]
  - Loss of personal independence in daily activities [None]
  - Withdrawal syndrome [None]
  - Migraine [None]

NARRATIVE: CASE EVENT DATE: 20241216
